FAERS Safety Report 20395785 (Version 2)
Quarter: 2022Q3

REPORT INFORMATION
  Report Type: Spontaneous
  Country: US (occurrence: US)
  Receive Date: 20220130
  Receipt Date: 20220711
  Transmission Date: 20221026
  Serious: No
  Sender: FDA-Public Use
  Company Number: US-BIOGEN-2022BI01088686

PATIENT
  Sex: Male

DRUGS (2)
  1. SPINRAZA [Suspect]
     Active Substance: NUSINERSEN
     Indication: Spinal muscular atrophy
     Route: 050
  2. SPINRAZA [Suspect]
     Active Substance: NUSINERSEN
     Dosage: PHYSICIAN TO ADMINISTER 12MG/5ML INTRATHECALLY ONCE EVERY 4 MONTHS.
     Route: 050

REACTIONS (4)
  - Pharyngitis streptococcal [Unknown]
  - Nasopharyngitis [Unknown]
  - Post lumbar puncture syndrome [Unknown]
  - Ear infection [Unknown]

NARRATIVE: CASE EVENT DATE: 20220101
